FAERS Safety Report 4997420-3 (Version None)
Quarter: 2006Q2

REPORT INFORMATION
  Report Type: 
  Country: None (occurrence: None)
  Receive Date: 20060509
  Receipt Date: 20050330
  Transmission Date: 20061013
  Serious: Yes (Death, Hospitalization)
  Sender: FDA-Public Use
  Company Number: US-MERCK-0504USA00144

PATIENT
  Age: 60 Year
  Sex: Male
  Weight: 75 kg

DRUGS (7)
  1. VIOXX [Suspect]
     Indication: ARTHRITIS
     Route: 048
     Dates: start: 20010620, end: 20020510
  2. VIOXX [Suspect]
     Indication: GOUT
     Route: 048
     Dates: start: 20010620, end: 20020510
  3. ASPERCREME [Concomitant]
     Route: 065
  4. TYLENOL (CAPLET) [Concomitant]
     Route: 065
  5. ALKA-SELTZER [Concomitant]
     Route: 065
  6. HYDROCHLOROTHIAZIDE [Concomitant]
     Route: 048
  7. TENORMIN [Concomitant]
     Route: 048

REACTIONS (2)
  - ACUTE MYOCARDIAL INFARCTION [None]
  - INJURY [None]
